FAERS Safety Report 17573212 (Version 6)
Quarter: 2021Q2

REPORT INFORMATION
  Report Type: Report from Study
  Country: None (occurrence: JP)
  Receive Date: 20200323
  Receipt Date: 20210402
  Transmission Date: 20210716
  Serious: Yes (Hospitalization)
  Sender: FDA-Public Use
  Company Number: JP-ABBVIE-20P-087-3332513-00

PATIENT
  Age: 48 Year
  Sex: Male
  Weight: 48 kg

DRUGS (9)
  1. ETHYL LOFLAZEPATE [Concomitant]
     Active Substance: ETHYL LOFLAZEPATE
     Indication: DEPRESSION
     Route: 065
     Dates: end: 20191112
  2. SUVOREXANT. [Concomitant]
     Active Substance: SUVOREXANT
     Indication: INSOMNIA
     Route: 065
     Dates: start: 20191003
  3. LOXOPROFEN NA [Concomitant]
     Active Substance: LOXOPROFEN SODIUM
     Indication: PRODUCT USED FOR UNKNOWN INDICATION
     Dosage: TAPE (INCLUDING POULTICE)
     Route: 065
     Dates: start: 20200529
  4. LEUPRORELIN [Suspect]
     Active Substance: LEUPROLIDE ACETATE
     Indication: BULBOSPINAL MUSCULAR ATROPHY CONGENITAL
     Route: 058
     Dates: start: 20181221
  5. ETHYL LOFLAZEPATE [Concomitant]
     Active Substance: ETHYL LOFLAZEPATE
     Indication: PERSISTENT DEPRESSIVE DISORDER
  6. TRAZODONE HYDROCHLORIDE. [Concomitant]
     Active Substance: TRAZODONE HYDROCHLORIDE
     Indication: PERSISTENT DEPRESSIVE DISORDER
  7. TRAZODONE HYDROCHLORIDE. [Concomitant]
     Active Substance: TRAZODONE HYDROCHLORIDE
     Indication: DEPRESSION
     Route: 065
  8. RILMAZAFONE HYDROCHLORIDE [Concomitant]
     Active Substance: RILMAZAFONE HYDROCHLORIDE
     Indication: INSOMNIA
     Route: 065
     Dates: end: 20200324
  9. ALLOPURINOL. [Concomitant]
     Active Substance: ALLOPURINOL
     Indication: HYPERURICAEMIA
     Route: 065

REACTIONS (4)
  - Fall [Recovered/Resolved]
  - Hepatic function abnormal [Recovered/Resolved]
  - Weight increased [Recovering/Resolving]
  - Fracture [Recovered/Resolved]

NARRATIVE: CASE EVENT DATE: 20190118
